FAERS Safety Report 24079480 (Version 2)
Quarter: 2024Q3

REPORT INFORMATION
  Report Type: Spontaneous
  Country: JP (occurrence: JP)
  Receive Date: 20240711
  Receipt Date: 20240727
  Transmission Date: 20241017
  Serious: Yes (Hospitalization, Other)
  Sender: TEVA
  Company Number: JP-TEVA-VS-3217753

PATIENT
  Age: 7 Year
  Sex: Female

DRUGS (5)
  1. PREDNISOLONE [Suspect]
     Active Substance: PREDNISOLONE
     Indication: Nephritis
     Dosage: DOSAGE IS UNKNOWN
     Route: 048
     Dates: start: 20240717
  2. PREDNISOLONE [Suspect]
     Active Substance: PREDNISOLONE
     Indication: Nephritis
     Dosage: 1,5 TABLETS
     Route: 048
     Dates: start: 20240603
  3. PREDNISOLONE [Suspect]
     Active Substance: PREDNISOLONE
     Indication: Nephritis
     Dosage: 1.5 TABLETS
     Route: 048
     Dates: start: 20240703, end: 20240716
  4. PREDNISOLONE [Suspect]
     Active Substance: PREDNISOLONE
     Indication: Nephritis
     Dosage: DOSAGE IS UNKNOWN
     Route: 048
     Dates: start: 20240304
  5. PREDNISOLONE [Suspect]
     Active Substance: PREDNISOLONE
     Indication: Nephritis
     Dosage: 2.5 TABLETS
     Route: 048
     Dates: start: 20240603

REACTIONS (2)
  - Renal impairment [Recovered/Resolved]
  - Hypertrichosis [Not Recovered/Not Resolved]

NARRATIVE: CASE EVENT DATE: 20240101
